FAERS Safety Report 7222318-X (Version None)
Quarter: 2011Q1

REPORT INFORMATION
  Report Type: 
  Country: None (occurrence: None)
  Receive Date: 20110112
  Receipt Date: 20110110
  Transmission Date: 20110831
  Serious: No
  Sender: FDA-Public Use
  Company Number: US-PFIZER INC-2011006273

PATIENT
  Sex: Male
  Weight: 102.04 kg

DRUGS (1)
  1. NICOTROL [Suspect]
     Indication: SMOKING CESSATION THERAPY
     Dosage: UNK
     Dates: start: 20101112, end: 20101231

REACTIONS (2)
  - DRUG INEFFECTIVE [None]
  - CONSTIPATION [None]
